FAERS Safety Report 15918668 (Version 4)
Quarter: 2020Q1

REPORT INFORMATION
  Report Type: Spontaneous
  Country: US (occurrence: US)
  Receive Date: 20190205
  Receipt Date: 20200130
  Transmission Date: 20200409
  Serious: Yes (Death, Other)
  Sender: FDA-Public Use
  Company Number: US-ASTRAZENECA-2018SF34213

PATIENT
  Age: 749 Month
  Sex: Male

DRUGS (8)
  1. NORVASC [Concomitant]
     Active Substance: AMLODIPINE BESYLATE
  2. PRILOSEC [Suspect]
     Active Substance: OMEPRAZOLE MAGNESIUM
     Indication: GASTROOESOPHAGEAL REFLUX DISEASE
     Route: 048
     Dates: start: 20061017, end: 20130101
  3. PREDNISONE. [Concomitant]
     Active Substance: PREDNISONE
  4. PERCOCET [Concomitant]
     Active Substance: ACETAMINOPHEN\OXYCODONE HYDROCHLORIDE
  5. PRILOSEC [Suspect]
     Active Substance: OMEPRAZOLE MAGNESIUM
     Indication: GASTROOESOPHAGEAL REFLUX DISEASE
     Route: 048
     Dates: start: 200610
  6. ALLOPURINOL. [Concomitant]
     Active Substance: ALLOPURINOL
  7. CARDIZEM [Concomitant]
     Active Substance: DILTIAZEM HYDROCHLORIDE
  8. LOSARTAN. [Concomitant]
     Active Substance: LOSARTAN

REACTIONS (7)
  - Ureteric obstruction [Fatal]
  - Renal injury [Unknown]
  - Acute kidney injury [Not Recovered/Not Resolved]
  - B-cell lymphoma [Fatal]
  - Chronic kidney disease [Not Recovered/Not Resolved]
  - Urinary tract infection [Fatal]
  - Septic shock [Fatal]

NARRATIVE: CASE EVENT DATE: 201305
